FAERS Safety Report 10891700 (Version 1)
Quarter: 2015Q1

REPORT INFORMATION
  Report Type: Spontaneous
  Country: US (occurrence: US)
  Receive Date: 20150306
  Receipt Date: 20150306
  Transmission Date: 20150721
  Serious: Yes (Death)
  Sender: FDA-Public Use
  Company Number: US-BANPHARM-20153655

PATIENT
  Age: 51 Year
  Sex: Female

DRUGS (4)
  1. CALCIUM ANTAGONIST [Suspect]
     Active Substance: UNSPECIFIED INGREDIENT
  2. DIPHENHYDRAMINE UNKNOWN PRODUCT/ ACETAMINOPHEN [Suspect]
     Active Substance: ACETAMINOPHEN\DIPHENHYDRAMINE
  3. THIAZIDE [Suspect]
     Active Substance: UNSPECIFIED INGREDIENT
  4. ANTICONVULSANT, UNKNOWN [Suspect]
     Active Substance: UNSPECIFIED INGREDIENT

REACTIONS (2)
  - Completed suicide [Fatal]
  - Exposure via ingestion [None]
